FAERS Safety Report 24206282 (Version 1)
Quarter: 2024Q3

REPORT INFORMATION
  Report Type: Report from Study
  Country: US (occurrence: None)
  Receive Date: 20240813
  Receipt Date: 20240813
  Transmission Date: 20241017
  Serious: Yes (Other)
  Sender: ASTRAZENECA
  Company Number: 2024A178701

PATIENT
  Sex: Male

DRUGS (1)
  1. TRUQAP [Suspect]
     Active Substance: CAPIVASERTIB
     Indication: Breast cancer female
     Route: 048

REACTIONS (4)
  - Blood glucose abnormal [Unknown]
  - Feeding disorder [Unknown]
  - Weight decreased [Unknown]
  - Dysgeusia [Unknown]
